FAERS Safety Report 15493008 (Version 1)
Quarter: 2018Q4

REPORT INFORMATION
  Report Type: Spontaneous
  Country: US (occurrence: US)
  Receive Date: 20181004
  Receipt Date: 20181004
  Transmission Date: 20190205
  Serious: Yes (Hospitalization)
  Sender: FDA-Public Use
  Company Number: None

PATIENT
  Age: 71 Year
  Sex: Male

DRUGS (17)
  1. CLOPIDOGREL [Concomitant]
     Active Substance: CLOPIDOGREL BISULFATE
  2. FINASTERIDE. [Concomitant]
     Active Substance: FINASTERIDE
  3. HUMIRA [Suspect]
     Active Substance: ADALIMUMAB
     Indication: RHEUMATOID ARTHRITIS
     Dosage: ?          OTHER FREQUENCY:EVERY 2 WEEKS;?
     Route: 058
     Dates: start: 20180124
  4. ATORVASTASTIN [Concomitant]
  5. FOLIC ACID. [Concomitant]
     Active Substance: FOLIC ACID
  6. HYDROXYCHLOROQUINE [Concomitant]
     Active Substance: HYDROXYCHLOROQUINE
  7. TERAZOSIN [Concomitant]
     Active Substance: TERAZOSIN\TERAZOSIN HYDROCHLORIDE
  8. CARVEDILOL. [Concomitant]
     Active Substance: CARVEDILOL
  9. TAMSULOSIN [Concomitant]
     Active Substance: TAMSULOSIN
  10. ESCITALOPRAM [Concomitant]
     Active Substance: ESCITALOPRAM OXALATE
  11. ALLOPURINOL. [Concomitant]
     Active Substance: ALLOPURINOL
  12. GABAPENTIN. [Concomitant]
     Active Substance: GABAPENTIN
  13. METHOTREXATE. [Concomitant]
     Active Substance: METHOTREXATE
  14. TOLTERODINE [Concomitant]
     Active Substance: TOLTERODINE
  15. ALENDRONATE [Concomitant]
     Active Substance: ALENDRONATE SODIUM
  16. LISINOPRIL. [Concomitant]
     Active Substance: LISINOPRIL
  17. SIMVASTATIN. [Concomitant]
     Active Substance: SIMVASTATIN

REACTIONS (2)
  - Myocardial infarction [None]
  - Cerebrovascular accident [None]

NARRATIVE: CASE EVENT DATE: 20180729
